FAERS Safety Report 19132973 (Version 2)
Quarter: 2021Q3

REPORT INFORMATION
  Report Type: Spontaneous
  Country: US (occurrence: US)
  Receive Date: 20210413
  Receipt Date: 20210929
  Transmission Date: 20211014
  Serious: Yes (Other)
  Sender: FDA-Public Use
  Company Number: US-GILEAD-2021-0524853

PATIENT
  Age: 54 Year
  Sex: Male
  Weight: 104.31 kg

DRUGS (21)
  1. RANITIDINE. [Concomitant]
     Active Substance: RANITIDINE
  2. TRUVADA [Suspect]
     Active Substance: EMTRICITABINE\TENOFOVIR DISOPROXIL FUMARATE
     Dosage: UNK
     Route: 065
     Dates: start: 20160817, end: 20170705
  3. ATRIPLA [Suspect]
     Active Substance: EFAVIRENZ\EMTRICITABINE\TENOFOVIR DISOPROXIL FUMARATE
     Dosage: UNK
     Route: 065
     Dates: start: 2006, end: 201301
  4. BIKTARVY [Concomitant]
     Active Substance: BICTEGRAVIR SODIUM\EMTRICITABINE\TENOFOVIR ALAFENAMIDE FUMARATE
  5. NAPROXEN. [Concomitant]
     Active Substance: NAPROXEN
  6. ATORVASTATIN [Concomitant]
     Active Substance: ATORVASTATIN
  7. VIAGRA [Concomitant]
     Active Substance: SILDENAFIL CITRATE
  8. HYDROCODONE [Concomitant]
     Active Substance: HYDROCODONE
  9. ATRIPLA [Suspect]
     Active Substance: EFAVIRENZ\EMTRICITABINE\TENOFOVIR DISOPROXIL FUMARATE
     Dosage: UNK
     Route: 065
     Dates: start: 201301, end: 201608
  10. DESCOVY [Concomitant]
     Active Substance: EMTRICITABINE\TENOFOVIR ALAFENAMIDE FUMARATE
  11. GABAPENTIN. [Concomitant]
     Active Substance: GABAPENTIN
  12. LISINOPRIL. [Concomitant]
     Active Substance: LISINOPRIL
  13. IBUPROFEN. [Concomitant]
     Active Substance: IBUPROFEN
  14. TRUVADA [Suspect]
     Active Substance: EMTRICITABINE\TENOFOVIR DISOPROXIL FUMARATE
     Indication: HIV INFECTION
     Dosage: UNK
     Route: 048
     Dates: start: 2004, end: 2006
  15. ATRIPLA [Suspect]
     Active Substance: EFAVIRENZ\EMTRICITABINE\TENOFOVIR DISOPROXIL FUMARATE
     Indication: HIV INFECTION
     Dosage: UNK
     Route: 048
     Dates: start: 2004, end: 2006
  16. ATRIPLA [Suspect]
     Active Substance: EFAVIRENZ\EMTRICITABINE\TENOFOVIR DISOPROXIL FUMARATE
     Dosage: UNK
     Route: 065
     Dates: start: 20130507, end: 20160718
  17. AMLODIPINE [Concomitant]
     Active Substance: AMLODIPINE BESYLATE
  18. ASPIRIN 81 [Concomitant]
     Active Substance: ASPIRIN
  19. KEFLEX [Concomitant]
     Active Substance: CEPHALEXIN
  20. MELATONIN [Concomitant]
     Active Substance: MELATONIN
  21. TIVICAY [Concomitant]
     Active Substance: DOLUTEGRAVIR SODIUM

REACTIONS (12)
  - Renal impairment [Unknown]
  - Foot fracture [Recovered/Resolved]
  - Movement disorder [Unknown]
  - Anxiety [Not Recovered/Not Resolved]
  - Osteopenia [Not Recovered/Not Resolved]
  - Renal failure [Recovered/Resolved]
  - Anhedonia [Not Recovered/Not Resolved]
  - Chronic kidney disease [Unknown]
  - Pain [Not Recovered/Not Resolved]
  - Emotional distress [Not Recovered/Not Resolved]
  - Degenerative bone disease [Unknown]
  - Renal impairment [Recovered/Resolved]

NARRATIVE: CASE EVENT DATE: 20160121
